FAERS Safety Report 7267753-9 (Version None)
Quarter: 2011Q1

REPORT INFORMATION
  Report Type: 
  Country: None (occurrence: None)
  Receive Date: 20110121
  Receipt Date: 20110107
  Transmission Date: 20110831
  Serious: Yes (Hospitalization)
  Sender: FDA-Public Use
  Company Number: 015495

PATIENT
  Sex: Female

DRUGS (18)
  1. ISONIAZID [Concomitant]
  2. SENNOSIDE /00571902/ [Concomitant]
  3. BUCILLAMINE [Concomitant]
  4. OLOPATADINE HYDROCHLORIDE [Concomitant]
  5. PREDNISOLONE [Concomitant]
  6. LOXOPROFEN [Concomitant]
  7. FAMOTIDINE [Concomitant]
  8. THEOPHYLLINE [Concomitant]
  9. AURANOFIN [Concomitant]
  10. AZULENE SODIUM SULFONATE [Concomitant]
  11. AMPHOTERICIN B [Concomitant]
  12. LIRANAFTATE [Concomitant]
  13. SALAZOSULFAPYRIDINE [Concomitant]
  14. VIDARABINE [Concomitant]
  15. TERBINAFINE HYDROCHLORIDE [Concomitant]
  16. CERTOLIZUMAB PEGOL (CERTOLIZUMAB PEGOL) [Suspect]
     Indication: RHEUMATOID ARTHRITIS
     Dosage: (200 MG 1X/2 WEEKS SUBCUTANEOUS), (200 MG 1X/2 WEEKS SUBCUTANEOUS)
     Route: 058
     Dates: start: 20091210, end: 20100707
  17. ATORVASTATIN CALCIUM [Concomitant]
  18. DIFLUCORTOLONE VALERATE [Concomitant]

REACTIONS (1)
  - DERMAL CYST [None]
